FAERS Safety Report 6082998-1 (Version None)
Quarter: 2009Q1

REPORT INFORMATION
  Report Type: 
  Country: None (occurrence: None)
  Receive Date: 20090218
  Receipt Date: 20090212
  Transmission Date: 20090719
  Serious: Yes (Hospitalization)
  Sender: FDA-Public Use
  Company Number: IT-B.I. PHARMACEUTICALS,INC./RIDGEFIELD-2009-DE-01466GD

PATIENT

DRUGS (10)
  1. CLONIDINE [Suspect]
     Indication: PROCEDURAL PAIN
     Dosage: 20 ML CONTAINING 1 MCG/KG
     Route: 014
  2. ROPIVACAINE [Suspect]
     Indication: PROCEDURAL PAIN
     Dosage: 100MG
     Route: 014
  3. SUFENTANIL [Suspect]
     Indication: PROCEDURAL PAIN
     Dosage: 5MCG
     Route: 014
  4. SUFENTANIL [Suspect]
     Indication: INDUCTION OF ANAESTHESIA
     Dosage: 0.3 MCG/KG
  5. KETOROLAC [Concomitant]
     Indication: ANALGESIA
     Dosage: 60MG
  6. DEXAMETHASONE TAB [Concomitant]
     Indication: PROPHYLAXIS OF NAUSEA AND VOMITING
     Dosage: 4MG
  7. MIDAZOLAM HCL [Concomitant]
     Indication: ANAESTHETIC PREMEDICATION
     Dosage: 2MG
     Route: 042
  8. PROPOFOL [Concomitant]
     Indication: INDUCTION AND MAINTENANCE OF ANAESTHESIA
     Dosage: 2 - 2.5 MG/KG
  9. PROPOFOL [Concomitant]
     Dosage: 5 - 6 MG/KG/H
  10. REMIFENTANIL [Concomitant]
     Indication: MAINTENANCE OF ANAESTHESIA
     Dosage: 0.1 - 0.25 MCG/KG/MIN

REACTIONS (1)
  - HAEMORRHAGE [None]
